FAERS Safety Report 17407205 (Version 1)
Quarter: 2020Q1

REPORT INFORMATION
  Report Type: Report from Study
  Country: None (occurrence: US)
  Receive Date: 20200212
  Receipt Date: 20200212
  Transmission Date: 20200409
  Serious: Yes (Hospitalization)
  Sender: FDA-Public Use
  Company Number: US-ABBVIE-19K-163-2980320-00

PATIENT
  Sex: Male

DRUGS (2)
  1. HUMIRA [Suspect]
     Active Substance: ADALIMUMAB
     Indication: RHEUMATOID ARTHRITIS
     Route: 058
     Dates: start: 20191019, end: 2019
  2. HUMIRA [Suspect]
     Active Substance: ADALIMUMAB
     Route: 058
     Dates: start: 2019

REACTIONS (17)
  - Impaired self-care [Not Recovered/Not Resolved]
  - Depression [Recovering/Resolving]
  - Skin discolouration [Unknown]
  - Therapeutic response shortened [Unknown]
  - Gait disturbance [Not Recovered/Not Resolved]
  - Anxiety [Recovering/Resolving]
  - Hypoaesthesia [Recovering/Resolving]
  - Joint stiffness [Recovering/Resolving]
  - Depression [Not Recovered/Not Resolved]
  - Joint swelling [Not Recovered/Not Resolved]
  - Pain [Not Recovered/Not Resolved]
  - Feeling hot [Unknown]
  - Peripheral swelling [Not Recovered/Not Resolved]
  - Paraesthesia [Unknown]
  - Limb deformity [Not Recovered/Not Resolved]
  - Rheumatoid arthritis [Not Recovered/Not Resolved]
  - Musculoskeletal stiffness [Recovering/Resolving]

NARRATIVE: CASE EVENT DATE: 2019
